FAERS Safety Report 6502475-0 (Version None)
Quarter: 2009Q4

REPORT INFORMATION
  Report Type: 
  Country: None (occurrence: None)
  Receive Date: 20091209
  Receipt Date: 20091127
  Transmission Date: 20100525
  Serious: Yes (Death, Hospitalization)
  Sender: FDA-Public Use
  Company Number: WAES 0911USA02713

PATIENT
  Age: 83 Year
  Sex: Female

DRUGS (6)
  1. FOSAMAX [Suspect]
     Indication: OSTEOPOROSIS
     Dosage: 35 MG/WKY PO
     Route: 048
     Dates: start: 20071017, end: 20071220
  2. ASPIRIN [Suspect]
     Indication: ATRIAL FIBRILLATION
     Dosage: 100 MG/DAILY PO
     Route: 048
  3. ACARBOSE [Suspect]
     Indication: DIABETES MELLITUS
     Dosage: 50 MG/Q12H PO
     Route: 048
  4. CAP SUNRYTHM (PILSICAINIDE HYDROCHLORIDE) [Suspect]
     Indication: ATRIAL FIBRILLATION
     Dosage: 50 MG/Q8H PO
     Route: 048
  5. MEVAN [Concomitant]
  6. UBRETID [Concomitant]

REACTIONS (2)
  - CEREBRAL INFARCTION [None]
  - HYPOGLYCAEMIA [None]
